FAERS Safety Report 10570389 (Version 1)
Quarter: 2014Q4

REPORT INFORMATION
  Report Type: Spontaneous
  Country: ES (occurrence: ES)
  Receive Date: 20141107
  Receipt Date: 20141107
  Transmission Date: 20150529
  Serious: Yes (Other)
  Sender: FDA-Public Use
  Company Number: ES-ASPEN PHARMA TRADING LIMITED US-AG-2014-005583

PATIENT
  Age: 33 Year
  Sex: Female

DRUGS (4)
  1. FONDAPARINUX [Suspect]
     Active Substance: FONDAPARINUX
     Indication: ANTIPHOSPHOLIPID SYNDROME
     Route: 065
  2. HYDROXYCHLOROQUINE [Suspect]
     Active Substance: HYDROXYCHLOROQUINE
     Indication: ANTIPHOSPHOLIPID SYNDROME
     Route: 065
  3. ACETYLSALICYLIC ACID [Suspect]
     Active Substance: ASPIRIN
     Indication: ANTIPHOSPHOLIPID SYNDROME
     Route: 065
  4. WARFARIN [Suspect]
     Active Substance: WARFARIN
     Indication: ANTIPHOSPHOLIPID SYNDROME
     Route: 065

REACTIONS (4)
  - Off label use [Unknown]
  - Exposure during pregnancy [Unknown]
  - Abortion spontaneous [Unknown]
  - Maternal drugs affecting foetus [None]
